FAERS Safety Report 7407739 (Version 4)
Quarter: 2013Q3

REPORT INFORMATION
  Report Type: Report from Study
  Country: FR (occurrence: FR)
  Receive Date: 20100602
  Receipt Date: 20130920
  Transmission Date: 20140515
  Serious: Yes (Hospitalization, Other)
  Sender: FDA-Public Use
  Company Number: PHHY2010FR33008

PATIENT
  Age: 74 Year
  Sex: Male
  Weight: 80 kg

DRUGS (5)
  1. STI571 [Suspect]
     Indication: CHRONIC MYELOID LEUKAEMIA
     Dosage: UNK UKN, UNK
     Dates: start: 20041022
  2. TASIGNA [Suspect]
     Dosage: 800 MG/DAY
     Route: 048
     Dates: start: 20091026
  3. SPRYCEL//DASATINIB [Suspect]
     Dosage: 100 MG, UNK
  4. SKENAN [Concomitant]
     Dosage: 2 DF, (20 MG) DAILY
  5. PREVISCAN [Concomitant]
     Dosage: 20 MG/DAY

REACTIONS (11)
  - Aortic stenosis [Recovering/Resolving]
  - Pulmonary embolism [Recovered/Resolved]
  - Dysphonia [Recovering/Resolving]
  - Pleural effusion [Recovering/Resolving]
  - Lung disorder [Recovering/Resolving]
  - Sepsis [Recovered/Resolved]
  - Hyperthermia [Recovered/Resolved]
  - Lymphadenopathy mediastinal [Recovering/Resolving]
  - Chills [Recovered/Resolved]
  - Peripheral ischaemia [Unknown]
  - Arterial disorder [Unknown]
